FAERS Safety Report 5879570-2 (Version None)
Quarter: 2008Q3

REPORT INFORMATION
  Report Type: 
  Country: None (occurrence: None)
  Receive Date: 20080911
  Receipt Date: 20080911
  Transmission Date: 20090109
  Serious: Yes (Disabling)
  Sender: FDA-Public Use
  Company Number: None

PATIENT
  Sex: Female
  Weight: 60 kg

DRUGS (3)
  1. PEG-ASPARIGINASE 750 I.U. PER ML ENZON PHARMACEUTICALS [Suspect]
     Indication: ACUTE LYMPHOCYTIC LEUKAEMIA
     Dosage: 4200 UNITS ONCE IM
     Route: 030
  2. VINCRISTINE [Concomitant]
  3. KYTRIL [Concomitant]

REACTIONS (6)
  - DRUG EFFECT DECREASED [None]
  - DYSPHAGIA [None]
  - LIP SWELLING [None]
  - ODYNOPHAGIA [None]
  - PRURITUS [None]
  - URTICARIA [None]
